FAERS Safety Report 20114898 (Version 1)
Quarter: 2021Q4

REPORT INFORMATION
  Report Type: Spontaneous
  Country: US (occurrence: US)
  Receive Date: 20211125
  Receipt Date: 20211125
  Transmission Date: 20220303
  Serious: No
  Sender: FDA-Public Use
  Company Number: US-SANOFI-00860116

PATIENT
  Age: 36 Year
  Sex: Female

DRUGS (1)
  1. ADMELOG [Suspect]
     Active Substance: INSULIN LISPRO
     Indication: Diabetes mellitus
     Dosage: 6UNITS/4UNITS/7UNITS, TID
     Route: 065

REACTIONS (1)
  - Maternal exposure during pregnancy [Unknown]
